FAERS Safety Report 25885048 (Version 1)
Quarter: 2025Q4

REPORT INFORMATION
  Report Type: Spontaneous
  Country: US (occurrence: None)
  Receive Date: 20251004
  Receipt Date: 20251004
  Transmission Date: 20260118
  Serious: Yes (Hospitalization)
  Sender: FDA-CTU
  Company Number: None

PATIENT
  Age: 67 Year
  Sex: Male
  Weight: 85.3 kg

DRUGS (3)
  1. CISPLATIN [Suspect]
     Active Substance: CISPLATIN
     Dates: end: 20250910
  2. GEMCITABINE HYDROCHLORIDE [Suspect]
     Active Substance: GEMCITABINE HYDROCHLORIDE
     Dates: end: 20250917
  3. DECADRON [Suspect]
     Active Substance: DEXAMETHASONE

REACTIONS (13)
  - Pyrexia [None]
  - Chills [None]
  - Fatigue [None]
  - Leukocytosis [None]
  - Anaemia [None]
  - Thrombocytopenia [None]
  - Blood lactic acid increased [None]
  - Upper respiratory tract congestion [None]
  - Mycoplasma infection [None]
  - Constipation [None]
  - Rectal haemorrhage [None]
  - Iron deficiency anaemia [None]
  - Lactic acidosis [None]

NARRATIVE: CASE EVENT DATE: 20250924
